FAERS Safety Report 9620811 (Version 3)
Quarter: 2014Q3

REPORT INFORMATION
  Report Type: Report from Study
  Country: AR (occurrence: AR)
  Receive Date: 20131015
  Receipt Date: 20140731
  Transmission Date: 20150326
  Serious: Yes (Life-Threatening, Hospitalization, Other)
  Sender: FDA-Public Use
  Company Number: AR-BRISTOL-MYERS SQUIBB COMPANY-19500529

PATIENT
  Age: 73 Year
  Sex: Female

DRUGS (10)
  1. PANTOPRAZOLE [Concomitant]
     Active Substance: PANTOPRAZOLE SODIUM
     Route: 048
  2. ABATACEPT SUBQ INJECTION 125MG/ML [Suspect]
     Active Substance: ABATACEPT
     Indication: RHEUMATOID ARTHRITIS
     Dosage: 17OCT08-6MAR09,3APR13-25JUL13 WEEKLY SUBCUTANEOUS.
     Route: 058
     Dates: start: 20081017, end: 20130901
  3. ASPIRIN. [Concomitant]
     Active Substance: ASPIRIN
     Route: 048
  4. PREDNISONE. [Concomitant]
     Active Substance: PREDNISONE
     Route: 048
  5. PREGABALIN. [Concomitant]
     Active Substance: PREGABALIN
  6. DIOVAN [Concomitant]
     Active Substance: VALSARTAN
     Dosage: 1DF:1TABLET,DIOVAN D
     Route: 048
  7. NAPROXEN. [Concomitant]
     Active Substance: NAPROXEN
  8. OMEPRAZOLE. [Suspect]
     Active Substance: OMEPRAZOLE
  9. FOLIC ACID. [Concomitant]
     Active Substance: FOLIC ACID
     Route: 048
  10. METHOTREXATE [Concomitant]
     Active Substance: METHOTREXATE
     Route: 048

REACTIONS (5)
  - Diarrhoea [Unknown]
  - Plasma cell myeloma [Unknown]
  - Anaemia [Unknown]
  - Renal failure acute [Recovered/Resolved]
  - Tubulointerstitial nephritis [Unknown]

NARRATIVE: CASE EVENT DATE: 201309
